FAERS Safety Report 20222062 (Version 1)
Quarter: 2021Q4

REPORT INFORMATION
  Report Type: Spontaneous
  Country: US (occurrence: None)
  Receive Date: 20211222
  Receipt Date: 20211222
  Transmission Date: 20220303
  Serious: No
  Sender: FDA-Public Use
  Company Number: None

PATIENT
  Sex: Male

DRUGS (1)
  1. AMPYRA [Suspect]
     Active Substance: DALFAMPRIDINE
     Indication: Multiple sclerosis
     Dosage: FREQUENCY : TWICE A DAY;?
     Route: 048
     Dates: start: 201511

REACTIONS (8)
  - Multiple sclerosis [None]
  - Tremor [None]
  - Anxiety [None]
  - Wheelchair user [None]
  - Joint swelling [None]
  - Gravitational oedema [None]
  - Disability [None]
  - Multiple sclerosis [None]
